FAERS Safety Report 9414726 (Version 2)
Quarter: 2013Q3

REPORT INFORMATION
  Report Type: Spontaneous
  Country: US (occurrence: None)
  Receive Date: 20130717
  Receipt Date: 20130723
  Transmission Date: 20140515
  Serious: Yes (Hospitalization, Other)
  Sender: FDA-Public Use
  Company Number: TPA2013A06792

PATIENT
  Age: 80 Year
  Sex: Female

DRUGS (2)
  1. EDARBYCLOR [Suspect]
     Indication: HYPERTENSION
     Route: 048
     Dates: end: 2013
  2. NORVASC (AMLODIPINE BESILATE) [Concomitant]

REACTIONS (4)
  - Blood creatinine increased [None]
  - Blood sodium decreased [None]
  - Hyponatraemia [None]
  - Renal failure acute [None]
